FAERS Safety Report 4725851-5 (Version None)
Quarter: 2005Q3

REPORT INFORMATION
  Report Type: 
  Country: None (occurrence: None)
  Receive Date: 20050725
  Receipt Date: 20050725
  Transmission Date: 20060218
  Serious: Yes (Hospitalization)
  Sender: FDA-Public Use
  Company Number: None

PATIENT
  Age: 80 Year
  Sex: Male
  Weight: 54 kg

DRUGS (17)
  1. ROSIGLITAZONE [Suspect]
     Indication: DIABETES MELLITUS
     Dosage: 4 MG QD ORAL
     Route: 048
  2. FUROSEMIDE [Suspect]
     Indication: CARDIAC FAILURE CONGESTIVE
     Dosage: 40 MG QD ORAL
     Route: 048
     Dates: start: 20040407, end: 20040410
  3. FUROSEMIDE [Suspect]
     Indication: HYPERTENSION
     Dosage: 40 MG QD ORAL
     Route: 048
     Dates: start: 20040407, end: 20040410
  4. ATENOLOL [Concomitant]
  5. DM10/GUAIFENESIN [Concomitant]
  6. FOSINOPRIL [Concomitant]
  7. HYDROCHLOROTHIAZIDE [Concomitant]
  8. MECLIZINE [Concomitant]
  9. NAPROXEN [Concomitant]
  10. RANITIDINE [Concomitant]
  11. SERTRALINE HCL [Concomitant]
  12. SIMVASTATIN [Concomitant]
  13. POTASSIUM CHLORIDE [Concomitant]
  14. LORAZEPAM [Concomitant]
  15. NTG/SL [Concomitant]
  16. GLYBURIDE [Concomitant]
  17. ALBUTEROL [Concomitant]

REACTIONS (5)
  - ASTHENIA [None]
  - CONFUSIONAL STATE [None]
  - DYSARTHRIA [None]
  - HYPOGLYCAEMIA [None]
  - RENAL FAILURE ACUTE [None]
